FAERS Safety Report 7480370-0 (Version None)
Quarter: 2011Q2

REPORT INFORMATION
  Report Type: 
  Country: None (occurrence: None)
  Receive Date: 20110504
  Receipt Date: 20110419
  Transmission Date: 20111010
  Serious: Yes (Other)
  Sender: FDA-Public Use
  Company Number: AUR-APL-2011-01432

PATIENT
  Age: 48 Year
  Sex: Female
  Weight: 58.96 kg

DRUGS (5)
  1. MENEST [Concomitant]
  2. TRAZODONE HCL [Concomitant]
  3. PREVACID [Concomitant]
  4. PROPRANOLOL [Concomitant]
  5. CITALOPRAM HYDROBROMIDE [Suspect]
     Indication: ANXIETY
     Dosage: 10MG - DAILY - ORAL
     Route: 048
     Dates: start: 20100101

REACTIONS (5)
  - PRODUCT QUALITY ISSUE [None]
  - BLOOD PRESSURE FLUCTUATION [None]
  - FATIGUE [None]
  - PSYCHOMOTOR HYPERACTIVITY [None]
  - BLOOD TEST ABNORMAL [None]
